FAERS Safety Report 19904961 (Version 2)
Quarter: 2021Q4

REPORT INFORMATION
  Report Type: Report from Study
  Country: US (occurrence: US)
  Receive Date: 20211001
  Receipt Date: 20211023
  Transmission Date: 20220303
  Serious: Yes (Hospitalization, Other)
  Sender: FDA-Public Use
  Company Number: US-TAKEDA-US201914325

PATIENT
  Age: 52 Year
  Sex: Female
  Weight: 107 kg

DRUGS (27)
  1. TEDUGLUTIDE [Suspect]
     Active Substance: TEDUGLUTIDE
     Indication: Short-bowel syndrome
     Dosage: 5 MILLIGRAM (DAILY DOSE 5 MILLIGRAM), 3 DOSES PER WEEK
     Route: 065
     Dates: start: 20170711, end: 20180208
  2. TEDUGLUTIDE [Suspect]
     Active Substance: TEDUGLUTIDE
     Indication: Short-bowel syndrome
     Dosage: 5 MILLIGRAM (DAILY DOSE 5 MILLIGRAM), 3 DOSES PER WEEK
     Route: 065
     Dates: start: 20170711, end: 20180208
  3. TEDUGLUTIDE [Suspect]
     Active Substance: TEDUGLUTIDE
     Indication: Short-bowel syndrome
     Dosage: 5 MILLIGRAM (DAILY DOSE 5 MILLIGRAM), 3 DOSES PER WEEK
     Route: 065
     Dates: start: 20170711, end: 20180208
  4. TEDUGLUTIDE [Suspect]
     Active Substance: TEDUGLUTIDE
     Indication: Short-bowel syndrome
     Dosage: 5 MILLIGRAM (DAILY DOSE 5 MILLIGRAM), 3 DOSES PER WEEK
     Route: 065
     Dates: start: 20170711, end: 20180208
  5. TEDUGLUTIDE [Suspect]
     Active Substance: TEDUGLUTIDE
     Dosage: 5 MILLIGRAM (DAILY DOSE 5 MILLIGRAM), 3 DOSES PER WEEK
     Route: 065
     Dates: start: 20180605, end: 20180914
  6. TEDUGLUTIDE [Suspect]
     Active Substance: TEDUGLUTIDE
     Dosage: 5 MILLIGRAM (DAILY DOSE 5 MILLIGRAM), 3 DOSES PER WEEK
     Route: 065
     Dates: start: 20180605, end: 20180914
  7. TEDUGLUTIDE [Suspect]
     Active Substance: TEDUGLUTIDE
     Dosage: 5 MILLIGRAM (DAILY DOSE 5 MILLIGRAM), 3 DOSES PER WEEK
     Route: 065
     Dates: start: 20180605, end: 20180914
  8. TEDUGLUTIDE [Suspect]
     Active Substance: TEDUGLUTIDE
     Dosage: 5 MILLIGRAM (DAILY DOSE 5 MILLIGRAM), 3 DOSES PER WEEK
     Route: 065
     Dates: start: 20180605, end: 20180914
  9. TEDUGLUTIDE [Suspect]
     Active Substance: TEDUGLUTIDE
     Dosage: 5 MILLIGRAM (DAILY DOSE 5 MILLIGRAM), 4 DOSES PER WEEK
     Route: 065
     Dates: start: 20180914
  10. TEDUGLUTIDE [Suspect]
     Active Substance: TEDUGLUTIDE
     Dosage: 5 MILLIGRAM (DAILY DOSE 5 MILLIGRAM), 4 DOSES PER WEEK
     Route: 065
     Dates: start: 20180914
  11. TEDUGLUTIDE [Suspect]
     Active Substance: TEDUGLUTIDE
     Dosage: 5 MILLIGRAM (DAILY DOSE 5 MILLIGRAM), 4 DOSES PER WEEK
     Route: 065
     Dates: start: 20180914
  12. TEDUGLUTIDE [Suspect]
     Active Substance: TEDUGLUTIDE
     Dosage: 5 MILLIGRAM (DAILY DOSE 5 MILLIGRAM), 4 DOSES PER WEEK
     Route: 065
     Dates: start: 20180914
  13. TEDUGLUTIDE [Suspect]
     Active Substance: TEDUGLUTIDE
     Dosage: 2.6 UNK
     Route: 065
     Dates: start: 20180914, end: 20201201
  14. TEDUGLUTIDE [Suspect]
     Active Substance: TEDUGLUTIDE
     Dosage: 2.6 UNK
     Route: 065
     Dates: start: 20180914, end: 20201201
  15. TEDUGLUTIDE [Suspect]
     Active Substance: TEDUGLUTIDE
     Dosage: 2.6 UNK
     Route: 065
     Dates: start: 20180914, end: 20201201
  16. TEDUGLUTIDE [Suspect]
     Active Substance: TEDUGLUTIDE
     Dosage: 2.6 UNK
     Route: 065
     Dates: start: 20180914, end: 20201201
  17. TEDUGLUTIDE [Suspect]
     Active Substance: TEDUGLUTIDE
     Dosage: 0.25 MILLIGRAM/KILOGRAM, QD
     Route: 058
  18. TEDUGLUTIDE [Suspect]
     Active Substance: TEDUGLUTIDE
     Dosage: 0.25 MILLIGRAM/KILOGRAM, QD
     Route: 058
  19. TEDUGLUTIDE [Suspect]
     Active Substance: TEDUGLUTIDE
     Dosage: 0.25 MILLIGRAM/KILOGRAM, QD
     Route: 058
  20. TEDUGLUTIDE [Suspect]
     Active Substance: TEDUGLUTIDE
     Dosage: 0.25 MILLIGRAM/KILOGRAM, QD
     Route: 058
  21. BIOTENE NOS [Concomitant]
     Active Substance: CETYLPYRIDINIUM CHLORIDE OR SODIUM FLUORIDE OR SODIUM MONOFLUOROPHOSPHATE OR GLUCOSE OXIDASE\LACTOFE
     Indication: Dry mouth
  22. COUMADIN [Concomitant]
     Active Substance: WARFARIN SODIUM
     Indication: Embolism
  23. COUMADIN [Concomitant]
     Active Substance: WARFARIN SODIUM
     Indication: Thrombosis
  24. PROGESTERONE [Concomitant]
     Active Substance: PROGESTERONE
     Indication: Hormone replacement therapy
  25. BUDESONIDE [Concomitant]
     Active Substance: BUDESONIDE
     Indication: Crohn^s disease
     Dosage: 3 MILLIGRAM, QD
     Route: 048
  26. AMLODIPINE [Concomitant]
     Active Substance: AMLODIPINE BESYLATE
     Indication: Hypertension
     Dosage: 2.5 MILLIGRAM
     Route: 048
  27. ADAPALENE [Concomitant]
     Active Substance: ADAPALENE
     Dosage: 99999 UNK, QD
     Route: 061

REACTIONS (2)
  - Dyspnoea [Recovered/Resolved]
  - Pulmonary oedema [Recovered/Resolved]

NARRATIVE: CASE EVENT DATE: 20180921
